FAERS Safety Report 9713709 (Version 1)
Quarter: 2013Q4

REPORT INFORMATION
  Report Type: Spontaneous
  Country: JP (occurrence: JP)
  Receive Date: 20131126
  Receipt Date: 20131126
  Transmission Date: 20140711
  Serious: Yes (Hospitalization)
  Sender: FDA-Public Use
  Company Number: JP-BRISTOL-MYERS SQUIBB COMPANY-19815885

PATIENT
  Age: 33 Year
  Sex: Female
  Weight: 76 kg

DRUGS (2)
  1. METGLUCO [Suspect]
     Indication: TYPE 2 DIABETES MELLITUS
     Dosage: 05SEP13-13SEP13-750MG
     Route: 048
     Dates: start: 20110901, end: 20110904
  2. AMARYL [Concomitant]
     Indication: TYPE 2 DIABETES MELLITUS
     Route: 048

REACTIONS (2)
  - Nephrotic syndrome [Not Recovered/Not Resolved]
  - Weight increased [Unknown]
